FAERS Safety Report 25255619 (Version 1)
Quarter: 2025Q2

REPORT INFORMATION
  Report Type: Spontaneous
  Country: NL (occurrence: NL)
  Receive Date: 20250430
  Receipt Date: 20250430
  Transmission Date: 20250716
  Serious: Yes (Life-Threatening, Hospitalization, Other)
  Sender: AUROBINDO
  Company Number: NL-LRB-01050670

PATIENT
  Age: 70 Year
  Sex: Female
  Weight: 53 kg

DRUGS (1)
  1. PREDNISOLONE [Suspect]
     Active Substance: PREDNISOLONE
     Indication: Large intestinal ulcer
     Route: 048
     Dates: start: 20240219, end: 20240301

REACTIONS (1)
  - Intestinal perforation [Recovering/Resolving]
